FAERS Safety Report 23446694 (Version 2)
Quarter: 2024Q1

REPORT INFORMATION
  Report Type: Spontaneous
  Country: US (occurrence: US)
  Receive Date: 20240126
  Receipt Date: 20240131
  Transmission Date: 20240410
  Serious: No
  Sender: FDA-Public Use
  Company Number: US-MYLANLABS-2024M1001974

PATIENT
  Age: 74 Year

DRUGS (1)
  1. TYRVAYA [Suspect]
     Active Substance: VARENICLINE TARTRATE
     Indication: Dry eye
     Dosage: 1 DOSAGE FORM, BID (1 SPRAY IN EACH NOSTRIL EVERY 12 HOURS)
     Route: 045
     Dates: start: 20231127

REACTIONS (1)
  - Product use complaint [Unknown]

NARRATIVE: CASE EVENT DATE: 20231127
